FAERS Safety Report 8350941-8 (Version None)
Quarter: 2012Q2

REPORT INFORMATION
  Report Type: 
  Country: None (occurrence: None)
  Receive Date: 20120510
  Receipt Date: 20120427
  Transmission Date: 20120825
  Serious: Yes (Hospitalization)
  Sender: FDA-Public Use
  Company Number: US-CELGENEUS-163-21880-12041432

PATIENT
  Age: 54 Year
  Sex: Male
  Weight: 91.9 kg

DRUGS (31)
  1. POTASSIUM CHLORIDE [Concomitant]
     Dosage: 10 MILLIEQUIVALENTS
     Route: 048
  2. SIMVASTATIN [Concomitant]
     Dosage: 20 MILLIGRAM
     Route: 048
  3. ALTACE [Concomitant]
     Dosage: 10 MILLIGRAM
     Route: 048
  4. ZOFRAN [Concomitant]
     Dosage: 8 MILLIGRAM
     Route: 048
  5. ALBUTEROL [Concomitant]
     Route: 055
  6. ACIDOPHILUS [Concomitant]
     Indication: SUPPLEMENTATION THERAPY
     Dosage: 1 TABLET
     Route: 048
  7. ZOCOR [Concomitant]
     Dosage: 20 MILLIGRAM
     Route: 048
  8. GLUCOSAMINE [Concomitant]
     Indication: SUPPLEMENTATION THERAPY
     Dosage: 1
     Route: 048
  9. INSULIN [Concomitant]
     Route: 065
     Dates: start: 20120401
  10. REVLIMID [Suspect]
     Indication: NON-HODGKIN'S LYMPHOMA
     Dosage: 20 MILLIGRAM
     Route: 048
     Dates: start: 20120425
  11. ULTRAM [Concomitant]
     Indication: PAIN
     Route: 065
  12. TRAMADOL HYDROCHLORIDE [Concomitant]
     Indication: PAIN
     Dosage: 50 MILLIGRAM
     Route: 048
  13. ASPIRIN [Concomitant]
     Dosage: 81 MILLIGRAM
     Route: 048
  14. CIPROFLOXACIN [Concomitant]
     Dosage: LEFT EYE  1/2 RIBBON
     Route: 047
  15. HYDROCHLOROTHIAZIDE [Concomitant]
     Indication: BLOOD PRESSURE
     Dosage: 25 MILLIGRAM
     Route: 048
  16. ONDANSETRON [Concomitant]
     Indication: VOMITING
  17. VISINE EYE DROPS [Concomitant]
     Indication: EYE IRRITATION
     Dosage: BOTH EYES
     Route: 047
  18. CALCIUM + VITAMIN D [Concomitant]
     Indication: SUPPLEMENTATION THERAPY
     Dosage: 2 TABLET
     Route: 048
  19. ONDANSETRON [Concomitant]
     Indication: NAUSEA
     Dosage: 8 MILLIGRAM
     Route: 048
  20. RAMIPRIL [Concomitant]
     Indication: BLOOD PRESSURE
     Dosage: 10 MILLIGRAM
     Route: 048
  21. HUMALOG [Concomitant]
     Route: 065
  22. TESSALON [Concomitant]
     Route: 048
  23. REVLIMID [Suspect]
     Dosage: 20 MILLIGRAM
     Route: 048
     Dates: start: 20110817
  24. RITUXAN [Suspect]
     Indication: NON-HODGKIN'S LYMPHOMA
     Dosage: 375 MILLIGRAM/SQ. METER
     Route: 065
     Dates: start: 20120425
  25. STEROID [Concomitant]
     Dosage: 1 DROPS
     Route: 047
  26. TORADOL [Concomitant]
     Indication: PAIN
     Dosage: 10 MILLIGRAM
     Route: 048
  27. REVLIMID [Suspect]
     Dosage: 15 MILLIGRAM
     Route: 048
  28. SINGULAIR [Concomitant]
     Indication: SEASONAL ALLERGY
     Dosage: 10 MILLIGRAM
     Route: 048
  29. MULTI-VITAMINS [Concomitant]
     Indication: SUPPLEMENTATION THERAPY
     Dosage: 1 TABLET
     Route: 048
     Dates: end: 20110623
  30. NOVOLOG [Concomitant]
     Dosage: 70 UNITS/DAY
     Route: 058
  31. STEROID [Concomitant]
     Route: 041
     Dates: start: 20120406

REACTIONS (4)
  - DYSPNOEA [None]
  - NEUTROPENIA [None]
  - ASTHMA [None]
  - THROMBOCYTOPENIA [None]
